FAERS Safety Report 4716472-9 (Version None)
Quarter: 2005Q3

REPORT INFORMATION
  Report Type: 
  Country: None (occurrence: None)
  Receive Date: 20050714
  Receipt Date: 20050705
  Transmission Date: 20060218
  Serious: Yes (Other)
  Sender: FDA-Public Use
  Company Number: 2005059767

PATIENT
  Age: 74 Year
  Sex: Female
  Weight: 65 kg

DRUGS (7)
  1. VALDECOXIB [Suspect]
     Indication: OSTEOARTHRITIS
     Dosage: (20 MG, 1 IN 1 D), ORAL
     Route: 048
     Dates: end: 20050101
  2. ATORVASTATIN CALCIUM [Suspect]
     Indication: HYPERCHOLESTEROLAEMIA
     Dosage: ORAL
     Route: 048
     Dates: end: 20050101
  3. LEXOTANIL (BROMAZEPAN) [Concomitant]
  4. DICLOFENAC SODIUM [Concomitant]
  5. ALL OTHER THERAPEUTIC PRODUCUTS (ALL OTHER THERAPEUTIC PRODUCTS) [Concomitant]
  6. ALL OTHER THERAPEUTIC PRODUCUTS (ALL OTHER THERAPEUTIC PRODUCTS) [Concomitant]
  7. PRIMUM (FLUNITRAZEPAM) [Concomitant]

REACTIONS (4)
  - ABDOMINAL PAIN UPPER [None]
  - DIZZINESS [None]
  - MEMORY IMPAIRMENT [None]
  - SPEECH DISORDER [None]
